FAERS Safety Report 19232074 (Version 1)
Quarter: 2021Q2

REPORT INFORMATION
  Report Type: Spontaneous
  Country: AR (occurrence: AR)
  Receive Date: 20210507
  Receipt Date: 20210507
  Transmission Date: 20210717
  Serious: Yes (Hospitalization)
  Sender: FDA-Public Use
  Company Number: AR-AMGEN-ARGSP2021069368

PATIENT
  Age: 61 Year
  Sex: Female

DRUGS (1)
  1. ENBREL [Suspect]
     Active Substance: ETANERCEPT
     Indication: RHEUMATOID ARTHRITIS
     Dosage: 50 MG, WEEKLY
     Route: 065
     Dates: start: 20180604

REACTIONS (15)
  - Renal colic [Unknown]
  - Dysstasia [Unknown]
  - Arthritis [Unknown]
  - Mobility decreased [Unknown]
  - Joint swelling [Unknown]
  - Abdominal pain upper [Unknown]
  - Gait disturbance [Unknown]
  - Pain [Unknown]
  - Arthropathy [Unknown]
  - Hypertension [Unknown]
  - Malaise [Unknown]
  - Asthenia [Unknown]
  - Headache [Unknown]
  - Tendonitis [Unknown]
  - Tremor [Unknown]

NARRATIVE: CASE EVENT DATE: 202104
